FAERS Safety Report 8403246-0 (Version None)
Quarter: 2012Q2

REPORT INFORMATION
  Report Type: 
  Country: None (occurrence: None)
  Receive Date: 20120601
  Receipt Date: 20120530
  Transmission Date: 20120825
  Serious: Yes (Hospitalization, Disabling, Other)
  Sender: FDA-Public Use
  Company Number: US-MERCK-1201USA01159

PATIENT
  Age: 60 Year
  Sex: Female

DRUGS (8)
  1. ALENDRONATE SODIUM [Suspect]
     Indication: OSTEOPOROSIS
     Route: 048
     Dates: start: 20090801, end: 20100101
  2. FOSAMAX [Suspect]
     Indication: OSTEOPENIA
     Route: 048
     Dates: start: 19980401, end: 20001101
  3. FOSAMAX [Suspect]
     Route: 048
     Dates: start: 20010101, end: 20080101
  4. FOSAMAX [Suspect]
     Route: 048
     Dates: start: 20010101, end: 20080101
  5. FOSAMAX PLUS D [Suspect]
     Indication: OSTEOPENIA
     Route: 048
     Dates: start: 20060301, end: 20070507
  6. FOSAMAX [Suspect]
     Indication: OSTEOPOROSIS
     Route: 048
     Dates: start: 19980401, end: 20001101
  7. FOSAMAX PLUS D [Suspect]
     Indication: OSTEOPOROSIS
     Route: 048
     Dates: start: 20060301, end: 20070507
  8. ALENDRONATE SODIUM [Suspect]
     Indication: OSTEOPENIA
     Route: 048
     Dates: start: 20090801, end: 20100101

REACTIONS (37)
  - BONE DISORDER [None]
  - MUSCULAR WEAKNESS [None]
  - PARATHYROID DISORDER [None]
  - SPINAL OSTEOARTHRITIS [None]
  - FALL [None]
  - MUSCLE SPASMS [None]
  - LOW TURNOVER OSTEOPATHY [None]
  - HYPOTENSION [None]
  - URTICARIA [None]
  - HEADACHE [None]
  - FEMUR FRACTURE [None]
  - BALANCE DISORDER [None]
  - CATARACT [None]
  - NAUSEA [None]
  - VERTIGO CNS ORIGIN [None]
  - INSOMNIA [None]
  - CHOLECYSTITIS [None]
  - DIZZINESS [None]
  - CERUMEN IMPACTION [None]
  - INTERVERTEBRAL DISC DEGENERATION [None]
  - NASOPHARYNGITIS [None]
  - CERVICAL SPINAL STENOSIS [None]
  - VERTIGO [None]
  - TINNITUS [None]
  - ASTHENIA [None]
  - NEUROPATHY PERIPHERAL [None]
  - IMPAIRED HEALING [None]
  - ANXIETY [None]
  - EAR PRURITUS [None]
  - TOOTH EXTRACTION [None]
  - TOOTH DISORDER [None]
  - PERNICIOUS ANAEMIA [None]
  - ROAD TRAFFIC ACCIDENT [None]
  - RED BLOOD CELL COUNT DECREASED [None]
  - COLON ADENOMA [None]
  - FOOT FRACTURE [None]
  - EAR PAIN [None]
